FAERS Safety Report 9341959 (Version 1)
Quarter: 2013Q2

REPORT INFORMATION
  Report Type: Spontaneous
  Country: US (occurrence: US)
  Receive Date: 20130611
  Receipt Date: 20130611
  Transmission Date: 20140414
  Serious: No
  Sender: FDA-Public Use
  Company Number: US-BIOGENIDEC-2013BI051628

PATIENT
  Sex: Female

DRUGS (1)
  1. TYSABRI [Suspect]
     Indication: MULTIPLE SCLEROSIS
     Route: 042
     Dates: start: 20080723

REACTIONS (8)
  - Drug hypersensitivity [Recovered/Resolved]
  - Agitation [Unknown]
  - Hemiparesis [Unknown]
  - General symptom [Unknown]
  - Pain [Unknown]
  - Pain in extremity [Unknown]
  - Coordination abnormal [Unknown]
  - Fatigue [Unknown]
